FAERS Safety Report 5691068-3 (Version None)
Quarter: 2008Q2

REPORT INFORMATION
  Report Type: 
  Country: None (occurrence: None)
  Receive Date: 20080401
  Receipt Date: 20080320
  Transmission Date: 20081010
  Serious: Yes (Other)
  Sender: FDA-Public Use
  Company Number: US-PFIZER INC-2008026434

PATIENT
  Sex: Female
  Weight: 97 kg

DRUGS (2)
  1. LYRICA [Suspect]
     Indication: FIBROMYALGIA
     Dates: start: 20080317, end: 20080318
  2. ATENOLOL [Concomitant]

REACTIONS (1)
  - DYSSTASIA [None]
